FAERS Safety Report 9360456 (Version 8)
Quarter: 2014Q1

REPORT INFORMATION
  Report Type: Report from Study
  Country: FR (occurrence: FR)
  Receive Date: 20130621
  Receipt Date: 20140313
  Transmission Date: 20141002
  Serious: Yes (Hospitalization)
  Sender: FDA-Public Use
  Company Number: FR-MERCK-1306FRA005764

PATIENT
  Sex: Male

DRUGS (11)
  1. VORINOSTAT [Suspect]
     Indication: MYELODYSPLASTIC SYNDROME
     Dosage: 600 MG, QD
     Route: 048
     Dates: start: 20130404, end: 20130606
  2. VIDAZA [Suspect]
     Indication: MYELODYSPLASTIC SYNDROME
     Dosage: 135 MG, QD
     Route: 058
     Dates: start: 20130402
  3. AMIODARONE [Concomitant]
     Indication: CARDIAC DISORDER
     Dosage: 100 MG, QD
     Route: 048
  4. ATENOLOL [Concomitant]
     Indication: CARDIAC DISORDER
     Dosage: 12 MG, QD
     Route: 048
  5. ATENOLOL [Concomitant]
     Dosage: 50 MG, QD
     Route: 048
  6. KARDEGIC [Concomitant]
     Indication: CARDIAC DISORDER
     Dosage: 75 MG, QD
     Route: 048
  7. ZOPHREN (ONDANSETRON HYDROCHLORIDE) [Concomitant]
     Dosage: 8 MG, UNK
     Route: 048
     Dates: start: 20130803
  8. DEROXAT [Concomitant]
     Indication: ANXIETY
     Dosage: 10 MG, QD
     Route: 048
     Dates: start: 20130803
  9. NOXAFIL [Concomitant]
     Indication: PROPHYLAXIS
     Dosage: 600 MG, QD
     Dates: start: 20130807
  10. LEXOMIL [Concomitant]
     Indication: ANXIETY
     Dosage: 3 MG, QD
     Route: 048
  11. INEXIUM [Concomitant]
     Indication: PROPHYLAXIS
     Dosage: 20 MG, BID
     Route: 048

REACTIONS (1)
  - Febrile bone marrow aplasia [Not Recovered/Not Resolved]
